FAERS Safety Report 4988652-9 (Version None)
Quarter: 2006Q2

REPORT INFORMATION
  Report Type: 
  Country: None (occurrence: None)
  Receive Date: 20060426
  Receipt Date: 20060412
  Transmission Date: 20061013
  Serious: Yes (Other)
  Sender: FDA-Public Use
  Company Number: SERX20060005

PATIENT
  Sex: Female

DRUGS (2)
  1. OXAZEPAM [Suspect]
     Dosage: PO
     Route: 048
  2. EFFEXOR LP(VENLAFAXINE) [Suspect]
     Indication: DEPRESSION
     Dosage: 750 MG ONCE PO
     Route: 048
     Dates: start: 20060402, end: 20060402

REACTIONS (2)
  - INTENTIONAL OVERDOSE [None]
  - SUICIDE ATTEMPT [None]
